FAERS Safety Report 7042476-X (Version None)
Quarter: 2010Q4

REPORT INFORMATION
  Report Type: 
  Country: None (occurrence: None)
  Receive Date: 20101013
  Receipt Date: 20100430
  Transmission Date: 20110411
  Serious: No
  Sender: FDA-Public Use
  Company Number: US-ASTRAZENECA-2009SE26908

PATIENT
  Age: 89 Year
  Sex: Male
  Weight: 68 kg

DRUGS (14)
  1. SYMBICORT [Suspect]
     Indication: INCREASED UPPER AIRWAY SECRETION
     Dosage: 320 MICROGRAM TOTAL DAILY DOSE
     Route: 055
     Dates: start: 20090401, end: 20091102
  2. SYMBICORT [Suspect]
     Dosage: 640 MICROGRAM TOTAL DAILY DOSE
     Route: 055
     Dates: start: 20091104
  3. SYMBICORT [Suspect]
     Dosage: 320 UG TOTAL DAILY DOSE
     Route: 055
     Dates: start: 20090101, end: 20100101
  4. SYMBICORT [Suspect]
     Dosage: 640 UG TOTAL DAILY DOSE
     Route: 055
     Dates: start: 20100101
  5. DIGOXIN [Concomitant]
     Route: 048
  6. ATACAND [Concomitant]
     Route: 048
  7. LIPITOR [Concomitant]
     Route: 048
  8. WARFARIN SODIUM [Concomitant]
  9. ASPIRIN [Concomitant]
     Route: 048
  10. METOPROLOL [Concomitant]
     Route: 048
  11. COSOPT [Concomitant]
  12. XALATAN [Concomitant]
  13. COUMADIN [Concomitant]
     Route: 048
  14. EYE DROPS [Concomitant]
     Route: 061

REACTIONS (2)
  - INCREASED UPPER AIRWAY SECRETION [None]
  - INTRAOCULAR PRESSURE INCREASED [None]
